FAERS Safety Report 7652102-4 (Version None)
Quarter: 2011Q3

REPORT INFORMATION
  Report Type: 
  Country: None (occurrence: None)
  Receive Date: 20110803
  Receipt Date: 20110531
  Transmission Date: 20111222
  Serious: Yes (Hospitalization, Other)
  Sender: FDA-Public Use
  Company Number: US-BAYER-201025503NA

PATIENT
  Age: 28 Year
  Sex: Female
  Weight: 131.97 kg

DRUGS (21)
  1. YASMIN [Suspect]
     Indication: PREMENSTRUAL SYNDROME
     Dosage: UNK
     Route: 048
     Dates: start: 20060710, end: 20090506
  2. XANAX [Concomitant]
  3. ACETAMINOPHEN [Concomitant]
     Dosage: 325MG 1-2 TABLETS EVERY 4-6 HOURS
     Route: 048
  4. DOCUSATE SODIUM [Concomitant]
     Dosage: 25 CC BID
     Route: 048
  5. MEDROXYPROGESTERONE ACETATE [Concomitant]
  6. ONDANSETRON [Concomitant]
  7. HYDROCODONE [Concomitant]
     Dosage: 5/500MG, 1 TABLET EVERY 4- 6 HOURS
     Route: 048
  8. DICYCLOMINE [Concomitant]
     Dosage: 20MG 1 TABLET QID
     Route: 048
  9. TOPIRAMATE [Concomitant]
     Dosage: 100MG 1-2 TABLETS AT NIGHT
     Route: 048
  10. RABEPRAZOLE SODIUM [Concomitant]
     Dosage: 20MG, 1 TABLET FOUR TIMES DAILY
     Route: 048
  11. LYRICA [Concomitant]
  12. PRILOSEC [Concomitant]
     Indication: ULCER
     Dosage: UNK
     Dates: start: 20070101
  13. LUNESTA [Concomitant]
     Dosage: UNK
     Dates: start: 20090101
  14. TOPAMAX [Concomitant]
     Indication: MIGRAINE
     Dosage: UNK
     Dates: start: 20040101
  15. NUVIGIL [Concomitant]
  16. NEXIUM [Concomitant]
     Indication: ULCER
     Dosage: UNK
     Dates: start: 20070101
  17. NSAID'S [Concomitant]
     Dosage: UNK
     Dates: start: 19980101, end: 20070101
  18. YAZ [Suspect]
     Indication: PREMENSTRUAL SYNDROME
     Dosage: UNK
     Route: 048
     Dates: start: 20081021, end: 20081121
  19. TRAMADOL HCL [Concomitant]
  20. SEROQUEL [Concomitant]
  21. MELOXICAM [Concomitant]
     Dosage: 25 MG, UNK
     Route: 048

REACTIONS (9)
  - GALLBLADDER DISORDER [None]
  - PROCEDURAL PAIN [None]
  - PROCEDURAL VOMITING [None]
  - CHOLELITHIASIS [None]
  - GALLBLADDER INJURY [None]
  - ABDOMINAL PAIN [None]
  - CHOLECYSTITIS CHRONIC [None]
  - VOMITING [None]
  - FOOD INTOLERANCE [None]
